FAERS Safety Report 25312356 (Version 1)
Quarter: 2025Q2

REPORT INFORMATION
  Report Type: Spontaneous
  Country: FR (occurrence: FR)
  Receive Date: 20250514
  Receipt Date: 20250514
  Transmission Date: 20250717
  Serious: Yes (Hospitalization)
  Sender: FRESENIUS KABI
  Company Number: None

PATIENT
  Age: 73 Year
  Sex: Male

DRUGS (4)
  1. LINEZOLID [Suspect]
     Active Substance: LINEZOLID
     Indication: Infection
     Route: 042
     Dates: start: 20250325, end: 20250401
  2. PIPERACILLIN [Concomitant]
     Active Substance: PIPERACILLIN
     Indication: Infection
     Route: 042
     Dates: start: 20250325, end: 20250401
  3. METRONIDAZOLE [Concomitant]
     Active Substance: METRONIDAZOLE
     Indication: Infection
     Route: 042
     Dates: start: 20250325, end: 20250401
  4. CASPOFUNGIN ACETATE ((MUSHROOM/GLAREA LOZOYENSIS)) [Concomitant]
     Indication: Infection
     Route: 042
     Dates: start: 20250325, end: 20250401

REACTIONS (2)
  - Thrombocytopenia [Not Recovered/Not Resolved]
  - Hyperlactacidaemia [Not Recovered/Not Resolved]

NARRATIVE: CASE EVENT DATE: 20250326
